FAERS Safety Report 7271005-0 (Version None)
Quarter: 2011Q1

REPORT INFORMATION
  Report Type: 
  Country: None (occurrence: None)
  Receive Date: 20110202
  Receipt Date: 20110128
  Transmission Date: 20110831
  Serious: Yes (Hospitalization, Disabling, Other)
  Sender: FDA-Public Use
  Company Number: US-PFIZER INC-2010141233

PATIENT
  Sex: Female

DRUGS (9)
  1. PROZAC [Concomitant]
     Indication: BIPOLAR DISORDER
  2. PROZAC [Concomitant]
     Indication: POST-TRAUMATIC STRESS DISORDER
  3. CYMBALTA [Concomitant]
     Indication: DEPRESSION
     Dosage: UNK
     Dates: start: 20031001, end: 20090501
  4. PROZAC [Concomitant]
     Indication: ANXIETY
  5. FENTANYL [Concomitant]
     Indication: ARTHRITIS
     Dosage: UNK
     Dates: start: 20060101
  6. CHANTIX [Suspect]
     Indication: SMOKING CESSATION THERAPY
     Dosage: STARTING MONTH PACK, 1 MG CONTINUING MONTH PACK
     Dates: start: 20081122, end: 20090701
  7. PROZAC [Concomitant]
     Indication: DEPRESSION
     Dosage: UNK
     Dates: start: 20060101
  8. FENTANYL [Concomitant]
     Indication: OSTEOARTHRITIS
  9. NICODERM [Concomitant]
     Indication: SMOKING CESSATION THERAPY
     Dosage: UNK
     Dates: start: 20050101, end: 20100101

REACTIONS (21)
  - DEPRESSION [None]
  - INSOMNIA [None]
  - MOOD SWINGS [None]
  - AMNESIA [None]
  - DISTURBANCE IN ATTENTION [None]
  - PSYCHOTIC DISORDER [None]
  - IRRITABILITY [None]
  - SUICIDAL IDEATION [None]
  - POST-TRAUMATIC STRESS DISORDER [None]
  - PARANOIA [None]
  - DELUSION [None]
  - BIPOLAR DISORDER [None]
  - ANGER [None]
  - AGITATION [None]
  - NIGHTMARE [None]
  - ANXIETY [None]
  - HALLUCINATION, AUDITORY [None]
  - AGGRESSION [None]
  - OBSESSIVE THOUGHTS [None]
  - TACHYPHRENIA [None]
  - HOMICIDAL IDEATION [None]
